FAERS Safety Report 24970197 (Version 1)
Quarter: 2025Q1

REPORT INFORMATION
  Report Type: Spontaneous
  Country: US (occurrence: US)
  Receive Date: 20250214
  Receipt Date: 20250214
  Transmission Date: 20250409
  Serious: Yes (Hospitalization, Other)
  Sender: BAYER HEALTHCARE LLC
  Company Number: US-BAYER-2025A020072

PATIENT
  Age: 8 Year
  Sex: Female

DRUGS (1)
  1. ASPIRIN [Suspect]
     Active Substance: ASPIRIN
     Indication: Cardiac failure

REACTIONS (4)
  - Pulmonary haemorrhage [None]
  - Product use issue [None]
  - Product prescribing issue [None]
  - Contraindicated product administered [None]
